FAERS Safety Report 6166713-9 (Version None)
Quarter: 2009Q2

REPORT INFORMATION
  Report Type: 
  Country: None (occurrence: None)
  Receive Date: 20090424
  Receipt Date: 20090423
  Transmission Date: 20091009
  Serious: Yes (Hospitalization)
  Sender: FDA-Public Use
  Company Number: US-PFIZER INC-2008048380

PATIENT
  Sex: Female
  Weight: 108.39 kg

DRUGS (7)
  1. CELECOXIB [Suspect]
     Indication: OSTEOARTHRITIS
     Dosage: 100 MG, 2X/DAY
     Route: 048
     Dates: start: 20080205
  2. PREVACID [Concomitant]
     Dosage: PRN
     Route: 048
     Dates: start: 20071201
  3. METFORMIN [Concomitant]
     Route: 048
     Dates: start: 20071101
  4. GLYBURIDE [Concomitant]
     Route: 048
     Dates: start: 20070801
  5. MULTI-VITAMINS [Concomitant]
     Route: 048
     Dates: start: 20050101
  6. ACTOS [Concomitant]
     Route: 048
     Dates: start: 20080121
  7. VICODIN [Concomitant]
     Route: 048
     Dates: start: 20080528

REACTIONS (2)
  - BONE FRAGMENTATION [None]
  - MENISCUS LESION [None]
